FAERS Safety Report 12230803 (Version 2)
Quarter: 2016Q3

REPORT INFORMATION
  Report Type: Spontaneous
  Country: US (occurrence: US)
  Receive Date: 20160401
  Receipt Date: 20160823
  Transmission Date: 20161109
  Serious: Yes (Hospitalization, Other)
  Sender: FDA-Public Use
  Company Number: US-JNJFOC-20160301367

PATIENT
  Age: 78 Year
  Sex: Male

DRUGS (2)
  1. XARELTO [Suspect]
     Active Substance: RIVAROXABAN
     Indication: THROMBOSIS
     Route: 048
     Dates: end: 2014
  2. XARELTO [Suspect]
     Active Substance: RIVAROXABAN
     Indication: THROMBOSIS
     Route: 048
     Dates: start: 20130115, end: 20130316

REACTIONS (6)
  - Pleural effusion [Recovering/Resolving]
  - Incorrect dose administered [Unknown]
  - Internal haemorrhage [Unknown]
  - Rib fracture [Unknown]
  - Off label use [Unknown]
  - Haemothorax [Unknown]

NARRATIVE: CASE EVENT DATE: 20130115
